FAERS Safety Report 9908235 (Version 2)
Quarter: 2014Q2

REPORT INFORMATION
  Report Type: Spontaneous
  Country: US (occurrence: US)
  Receive Date: 20140219
  Receipt Date: 20140414
  Transmission Date: 20141212
  Serious: Yes (Other)
  Sender: FDA-Public Use
  Company Number: US-SHIRE-ALL1-2014-01141

PATIENT
  Age: 59 Year
  Sex: Male
  Weight: 79.37 kg

DRUGS (2)
  1. VYVANSE [Suspect]
     Indication: ATTENTION DEFICIT/HYPERACTIVITY DISORDER
     Dosage: 70 MG, 1X/DAY:QD
     Route: 048
     Dates: start: 20140206, end: 20140211
  2. ADDERALL [Concomitant]
     Indication: ATTENTION DEFICIT/HYPERACTIVITY DISORDER
     Dosage: 30 MG, 3X/DAY:TID
     Route: 048
     Dates: start: 201205

REACTIONS (6)
  - Depressed mood [Not Recovered/Not Resolved]
  - Emotional poverty [Not Recovered/Not Resolved]
  - Feeling abnormal [Unknown]
  - Disorientation [Unknown]
  - Hypersensitivity [Unknown]
  - Product quality issue [Not Recovered/Not Resolved]
